FAERS Safety Report 11571837 (Version 2)
Quarter: 2015Q4

REPORT INFORMATION
  Report Type: Spontaneous
  Country: US (occurrence: US)
  Receive Date: 20150916
  Receipt Date: 20151027
  Transmission Date: 20160304
  Serious: No
  Sender: FDA-Public Use
  Company Number: US-ELI_LILLY_AND_COMPANY-US200909006797

PATIENT
  Sex: Female

DRUGS (6)
  1. CITRACAL [Concomitant]
     Active Substance: CALCIUM CITRATE
  2. FISH OIL [Concomitant]
     Active Substance: FISH OIL
  3. PROZAC [Concomitant]
     Active Substance: FLUOXETINE HYDROCHLORIDE
  4. FORTEO [Suspect]
     Active Substance: TERIPARATIDE
     Indication: OSTEOPOROSIS
     Dosage: UNK, UNKNOWN
     Route: 065
     Dates: start: 200901, end: 20090909
  5. FORTEO [Suspect]
     Active Substance: TERIPARATIDE
     Dosage: UNK, UNKNOWN
     Dates: start: 2009
  6. VITAMIN D [Concomitant]
     Active Substance: CHOLECALCIFEROL

REACTIONS (4)
  - Discomfort [Not Recovered/Not Resolved]
  - Abdominal discomfort [Unknown]
  - Dizziness [Unknown]
  - Muscular weakness [Not Recovered/Not Resolved]
